FAERS Safety Report 9489471 (Version 1)
Quarter: 2013Q3

REPORT INFORMATION
  Report Type: Spontaneous
  Country: US (occurrence: US)
  Receive Date: 20130829
  Receipt Date: 20130829
  Transmission Date: 20140515
  Serious: Yes (Death, Hospitalization, Other)
  Sender: FDA-Public Use
  Company Number: PHHY2013US092724

PATIENT
  Age: 65 Year
  Sex: Male

DRUGS (4)
  1. VORICONAZOLE [Suspect]
     Indication: BRONCHOPULMONARY ASPERGILLOSIS
     Dosage: 200 MG, BID
     Route: 048
  2. ETHAMBUTOL [Concomitant]
     Indication: MYCOBACTERIUM AVIUM COMPLEX INFECTION
  3. MOXIFLOXACIN [Concomitant]
     Indication: MYCOBACTERIUM AVIUM COMPLEX INFECTION
  4. AZITHROMYCIN [Concomitant]
     Indication: MYCOBACTERIUM AVIUM COMPLEX INFECTION

REACTIONS (3)
  - Respiratory failure [Fatal]
  - Periostitis [Unknown]
  - Joint swelling [Unknown]
